FAERS Safety Report 9223004 (Version 1)
Quarter: 2013Q1

REPORT INFORMATION
  Report Type: Spontaneous
  Country: US (occurrence: None)
  Receive Date: 20120914
  Receipt Date: 20120914
  Transmission Date: 20140127
  Serious: Yes (Other)
  Sender: FDA-Public Use
  Company Number: JPI-P-018942

PATIENT
  Age: 26 Year
  Sex: Male
  Weight: 52.16 kg

DRUGS (5)
  1. XYREM [Suspect]
     Indication: NARCOLEPSY
     Route: 048
     Dates: start: 201108, end: 20111221
  2. LISDEXAMFETAMINE DIMESYLATE [Concomitant]
  3. DESVENLAFAXINE [Concomitant]
  4. ARIPIRAZOLE [Concomitant]
  5. BUPROPION HCL [Concomitant]

REACTIONS (2)
  - Weight decreased [None]
  - Faecal incontinence [None]
